FAERS Safety Report 14349691 (Version 1)
Quarter: 2018Q1

REPORT INFORMATION
  Report Type: Report from Study
  Country: CN (occurrence: CN)
  Receive Date: 20180104
  Receipt Date: 20180104
  Transmission Date: 20180509
  Serious: Yes (Hospitalization)
  Sender: FDA-Public Use
  Company Number: PHHO2008CN018226

PATIENT
  Age: 55 Year
  Sex: Female

DRUGS (5)
  1. CEFUROXIME. [Concomitant]
     Active Substance: CEFUROXIME
     Indication: INFECTION PROPHYLAXIS
     Dosage: 0.75 G, BID
     Route: 042
     Dates: start: 20080902, end: 20080906
  2. COMPARATOR PACLITAXEL [Suspect]
     Active Substance: PACLITAXEL
     Indication: BREAST CANCER METASTATIC
     Dosage: 80 MG/M2, CYCLIC
     Route: 042
     Dates: start: 20080821, end: 20090122
  3. ETIMICIN [Concomitant]
     Active Substance: ETIMICIN SULFATE
     Indication: INFECTION PROPHYLAXIS
     Dosage: 0.2 G, QD
     Route: 042
     Dates: start: 20080901, end: 20080906
  4. MULTIVITAMIN [Concomitant]
     Active Substance: VITAMINS
     Indication: PRODUCT USED FOR UNKNOWN INDICATION
     Dosage: 2 G, QD
     Route: 042
     Dates: start: 20080901, end: 20080906
  5. TYKERB [Suspect]
     Active Substance: LAPATINIB DITOSYLATE
     Indication: BREAST CANCER METASTATIC
     Dosage: 1500 MG, QD
     Route: 048
     Dates: start: 20080821

REACTIONS (3)
  - Leukopenia [Recovered/Resolved]
  - Neutropenia [Recovered/Resolved]
  - Neutropenia [Recovered/Resolved]

NARRATIVE: CASE EVENT DATE: 20080826
